FAERS Safety Report 5529496-9 (Version None)
Quarter: 2007Q4

REPORT INFORMATION
  Report Type: 
  Country: None (occurrence: None)
  Receive Date: 20071129
  Receipt Date: 20071119
  Transmission Date: 20080405
  Serious: Yes (Other)
  Sender: FDA-Public Use
  Company Number: FR-GILEAD-2007-0014252

PATIENT
  Sex: Male
  Weight: 71 kg

DRUGS (3)
  1. TRUVADA [Suspect]
     Indication: HIV INFECTION
     Route: 048
     Dates: start: 20070913, end: 20070924
  2. SUSTIVA [Suspect]
     Indication: HIV INFECTION
     Route: 048
     Dates: start: 20050523
  3. FENOFIBRATE [Concomitant]
     Indication: HYPERTRIGLYCERIDAEMIA
     Route: 048
     Dates: start: 20020901

REACTIONS (5)
  - ANXIETY [None]
  - ASTHENIA [None]
  - DEPRESSION [None]
  - HEADACHE [None]
  - INSOMNIA [None]
